FAERS Safety Report 4681963-6 (Version None)
Quarter: 2005Q2

REPORT INFORMATION
  Report Type: 
  Country: None (occurrence: None)
  Receive Date: 20050606
  Receipt Date: 20050107
  Transmission Date: 20051028
  Serious: Yes (Hospitalization, Disabling)
  Sender: FDA-Public Use
  Company Number: JP-SP-2005-00118

PATIENT
  Age: 72 Year
  Sex: Male

DRUGS (18)
  1. IMMUCYST [Suspect]
     Indication: BLADDER CANCER
     Route: 043
     Dates: start: 20040412, end: 20040527
  2. IMMUCYST [Suspect]
     Route: 043
     Dates: start: 20040412, end: 20040527
  3. IMMUCYST [Suspect]
     Route: 043
     Dates: start: 20040412, end: 20040527
  4. IMMUCYST [Suspect]
     Route: 043
     Dates: start: 20040412, end: 20040527
  5. IMMUCYST [Suspect]
     Route: 043
     Dates: start: 20040412, end: 20040527
  6. IMMUCYST [Suspect]
     Route: 043
     Dates: start: 20040412, end: 20040527
  7. IMMUCYST [Suspect]
     Route: 043
     Dates: start: 20040412, end: 20040527
  8. NAFTOPIDIL [Concomitant]
     Dosage: 50 MG/DAY
     Route: 048
     Dates: start: 20040301, end: 20040406
  9. CEFDINIR [Concomitant]
     Dosage: 3CAP/DAY
     Dates: start: 20040301, end: 20040304
  10. LEVOFLOXACIN [Concomitant]
     Route: 048
  11. TEPRENONE [Concomitant]
     Route: 048
  12. TAMSULOSIN HCL [Concomitant]
     Dosage: 0.2MG/DAY
     Route: 048
     Dates: start: 20040419
  13. CEFCAPENE PIVOXIL HYDROCHLORIDE [Concomitant]
     Route: 048
  14. FLAVOXATE HYDROCHLORIDE [Concomitant]
     Dosage: 600MG/DAY
     Route: 048
     Dates: start: 20040418
  15. LOXOPROFEN SODIUM [Concomitant]
     Dosage: 180MG/DAY
     Route: 048
     Dates: start: 20040523, end: 20040614
  16. IRSOGLADINE MALEATE [Concomitant]
     Route: 048
  17. DICLOFENAC SODIUM [Concomitant]
  18. LOXOPROFEN SODIUM [Concomitant]
     Route: 048
     Dates: start: 20041012

REACTIONS (10)
  - ANOREXIA [None]
  - BLADDER CANCER RECURRENT [None]
  - BLADDER PAIN [None]
  - DIZZINESS [None]
  - DYSURIA [None]
  - FATIGUE [None]
  - HYPERTONIC BLADDER [None]
  - POLLAKIURIA [None]
  - URINARY BLADDER ATROPHY [None]
  - URINARY RETENTION [None]
